FAERS Safety Report 7656041-4 (Version None)
Quarter: 2011Q3

REPORT INFORMATION
  Report Type: 
  Country: None (occurrence: None)
  Receive Date: 20110804
  Receipt Date: 20110722
  Transmission Date: 20111222
  Serious: Yes (Death)
  Sender: FDA-Public Use
  Company Number: CA-ELI_LILLY_AND_COMPANY-CA201107006140

PATIENT
  Sex: Male

DRUGS (7)
  1. ZYPREXA [Suspect]
     Dosage: 20 MG, QD
  2. FLURAZEPAM [Concomitant]
  3. ZYPREXA [Suspect]
     Dosage: 10 MG, UNK
     Dates: start: 19961101
  4. AMITRIPTYLINE HCL [Concomitant]
  5. ZYPREXA [Suspect]
     Dosage: 30 MG, QD
  6. CITALOPRAM [Concomitant]
  7. RISPERIDONE [Concomitant]

REACTIONS (5)
  - DEATH [None]
  - OVERDOSE [None]
  - DIABETES MELLITUS [None]
  - BLOOD CHOLESTEROL INCREASED [None]
  - BLOOD TRIGLYCERIDES INCREASED [None]
